FAERS Safety Report 10162504 (Version 2)
Quarter: 2014Q2

REPORT INFORMATION
  Report Type: Spontaneous
  Country: FR (occurrence: FR)
  Receive Date: 20140509
  Receipt Date: 20140519
  Transmission Date: 20141212
  Serious: Yes (Hospitalization, Other)
  Sender: FDA-Public Use
  Company Number: FR-PFIZER INC-2014123337

PATIENT
  Age: 67 Year
  Sex: Female

DRUGS (15)
  1. AMLOR [Suspect]
     Indication: HYPERTENSION
     Route: 048
  2. TEMERIT [Suspect]
     Indication: HYPERTENSION
     Dosage: UNK
     Route: 048
     Dates: end: 20140214
  3. COAPROVEL [Suspect]
     Indication: HYPERTENSION
     Dosage: UNK
     Route: 048
     Dates: end: 201402
  4. PREVISCAN [Suspect]
     Indication: ATRIAL FIBRILLATION
     Dosage: UNK
     Route: 048
     Dates: start: 20140116, end: 201402
  5. FLECAINE [Suspect]
     Indication: ATRIAL FIBRILLATION
     Dosage: UNK
     Route: 048
     Dates: start: 20140116, end: 20140216
  6. CRESTOR [Concomitant]
     Dosage: UNK
  7. FOSAVANCE [Concomitant]
     Dosage: UNK
  8. LEVOTHYROX [Concomitant]
     Dosage: UNK
  9. LEVEMIR [Concomitant]
     Dosage: UNK
  10. NOVOMIX [Concomitant]
     Dosage: UNK
  11. PHYSIOTENS [Concomitant]
  12. ZOLTUM [Concomitant]
  13. AZOPT [Concomitant]
  14. ALPHAGAN [Concomitant]
  15. DUOTRAV [Concomitant]

REACTIONS (5)
  - Bradycardia [Recovered/Resolved]
  - Bundle branch block right [Recovered/Resolved]
  - Renal failure acute [Recovered/Resolved]
  - Atrioventricular block complete [Recovered/Resolved]
  - Coma [Unknown]
